FAERS Safety Report 7927961-8 (Version None)
Quarter: 2011Q4

REPORT INFORMATION
  Report Type: 
  Country: None (occurrence: None)
  Receive Date: 20111116
  Receipt Date: 20111103
  Transmission Date: 20120403
  Serious: Yes (Disabling)
  Sender: FDA-Public Use
  Company Number: 20110689

PATIENT
  Age: 42 Year
  Sex: Female
  Weight: 78.0187 kg

DRUGS (2)
  1. VENOFER (IRON SUCROSE INJECTION, USP) (2340-10) (IRON SUCROSE INJECTIO [Concomitant]
  2. VENOFER [Suspect]
     Indication: IRON DEFICIENCY ANAEMIA
     Dosage: 200 MG IN 100ML NS  OVER 50 MIN INTRAVENOUS DRIP
     Route: 041
     Dates: start: 20110404, end: 20110404

REACTIONS (5)
  - INJECTION SITE REACTION [None]
  - ACTIVITIES OF DAILY LIVING IMPAIRED [None]
  - EXTRAVASATION [None]
  - INJECTION SITE HAEMORRHAGE [None]
  - INFUSION SITE PAIN [None]
